FAERS Safety Report 7553401-7 (Version None)
Quarter: 2011Q2

REPORT INFORMATION
  Report Type: 
  Country: None (occurrence: None)
  Receive Date: 20110614
  Receipt Date: 20110614
  Transmission Date: 20111010
  Serious: Yes (Other)
  Sender: FDA-Public Use
  Company Number: None

PATIENT
  Age: 24 Year
  Sex: Female
  Weight: 54.4316 kg

DRUGS (1)
  1. AFRIN [Suspect]
     Indication: NASAL CONGESTION
     Dosage: 2 PUMPS PER NOSTRIL ONCE NASAL
     Route: 045
     Dates: start: 20110609, end: 20110609

REACTIONS (2)
  - NASAL CONGESTION [None]
  - AGEUSIA [None]
